FAERS Safety Report 24333520 (Version 1)
Quarter: 2024Q3

REPORT INFORMATION
  Report Type: Spontaneous
  Country: US (occurrence: None)
  Receive Date: 20240918
  Receipt Date: 20240918
  Transmission Date: 20241016
  Serious: Yes (Hospitalization)
  Sender: Public
  Company Number: None

PATIENT
  Age: 17 Year
  Sex: Female
  Weight: 59.7 kg

DRUGS (1)
  1. LEVOCARNITINE [Suspect]
     Active Substance: LEVOCARNITINE
     Dosage: OTHER QUANTITY : 9900 TABLET;?
     Dates: end: 20240911

REACTIONS (5)
  - Skin infection [None]
  - Incision site complication [None]
  - Device issue [None]
  - Dehiscence [None]
  - Medical device site cellulitis [None]

NARRATIVE: CASE EVENT DATE: 20240901
